FAERS Safety Report 7984759-2 (Version None)
Quarter: 2011Q4

REPORT INFORMATION
  Report Type: 
  Country: None (occurrence: None)
  Receive Date: 20111216
  Receipt Date: 20111212
  Transmission Date: 20120403
  Serious: Yes (Disabling, Other)
  Sender: FDA-Public Use
  Company Number: GB-SANOFI-AVENTIS-2011SA081372

PATIENT
  Age: 72 Year
  Sex: Female

DRUGS (4)
  1. CLOPIDOGREL BISULFATE [Suspect]
     Route: 048
     Dates: start: 20111114, end: 20111117
  2. CLOPIDOGREL BISULFATE [Suspect]
     Route: 048
     Dates: start: 20111114, end: 20111117
  3. ANTIHYPERTENSIVES [Concomitant]
  4. CARDIOVASCULAR SYSTEM DRUGS [Concomitant]

REACTIONS (4)
  - VISION BLURRED [None]
  - HEADACHE [None]
  - OFF LABEL USE [None]
  - BLINDNESS [None]
